FAERS Safety Report 21861640 (Version 1)
Quarter: 2023Q1

REPORT INFORMATION
  Report Type: Spontaneous
  Country: US (occurrence: US)
  Receive Date: 20230113
  Receipt Date: 20230113
  Transmission Date: 20230417
  Serious: No
  Sender: FDA-Public Use
  Company Number: US-NEUROCRINE BIOSCIENCES INC.-2022NBI09459

PATIENT

DRUGS (1)
  1. INGREZZA [Suspect]
     Active Substance: VALBENAZINE
     Indication: Tardive dyskinesia
     Dosage: 40 MILLIGRAM
     Route: 065
     Dates: start: 20221019

REACTIONS (4)
  - Confusional state [Recovered/Resolved]
  - Tardive dyskinesia [Recovered/Resolved]
  - Agitation [Recovered/Resolved]
  - Balance disorder [Recovered/Resolved]
